FAERS Safety Report 13109505 (Version 3)
Quarter: 2017Q4

REPORT INFORMATION
  Report Type: Spontaneous
  Country: FR (occurrence: FR)
  Receive Date: 20170112
  Receipt Date: 20171204
  Transmission Date: 20180320
  Serious: Yes (Hospitalization, Other)
  Sender: FDA-Public Use
  Company Number: FR-009507513-1701FRA003989

PATIENT
  Age: 39 Year
  Sex: Male
  Weight: 192 kg

DRUGS (5)
  1. TRAMADOL HYDROCHLORIDE. [Concomitant]
     Active Substance: TRAMADOL HYDROCHLORIDE
     Indication: PAIN
     Dosage: 50 MG, 3 TIMES A DAY
     Dates: start: 20160528, end: 201606
  2. FLAGYL [Concomitant]
     Active Substance: METRONIDAZOLE\METRONIDAZOLE HYDROCHLORIDE
     Indication: PAIN
     Dosage: 250 MG, THREE TIMES A WEEK
     Dates: start: 20120528, end: 201606
  3. ZEPATIER [Suspect]
     Active Substance: ELBASVIR\GRAZOPREVIR
     Indication: CHRONIC HEPATITIS C
     Dosage: 100/500MG, ONCE A DAY
     Route: 048
     Dates: start: 20160401, end: 20160624
  4. LANSOYL [Concomitant]
     Active Substance: MINERAL OIL
     Dosage: 1 VIAL, ONCE DAILY
     Dates: start: 20160528, end: 201606
  5. ACETAMINOPHEN. [Concomitant]
     Active Substance: ACETAMINOPHEN
     Indication: PAIN
     Dosage: 1 G, 4 TIMES A DAY
     Route: 048
     Dates: start: 20160528, end: 201606

REACTIONS (1)
  - Haemorrhoids [Recovered/Resolved]

NARRATIVE: CASE EVENT DATE: 20160526
